FAERS Safety Report 21206250 (Version 1)
Quarter: 2022Q3

REPORT INFORMATION
  Report Type: Report from Study
  Country: US (occurrence: US)
  Receive Date: 20220812
  Receipt Date: 20220812
  Transmission Date: 20221026
  Serious: Yes (Other)
  Sender: FDA-Public Use
  Company Number: US-CELGENE-USA-20220207970

PATIENT
  Age: 54 Year
  Sex: Female
  Weight: 102.97 kg

DRUGS (9)
  1. REVLIMID [Suspect]
     Active Substance: LENALIDOMIDE
     Indication: Plasma cell myeloma
     Dosage: 25 MILLIGRAM
     Route: 048
     Dates: start: 20210313
  2. REVLIMID [Suspect]
     Active Substance: LENALIDOMIDE
     Dosage: 5 MILLIGRAM; 14/21 DAYS
     Route: 048
     Dates: start: 202202
  3. REVLIMID [Suspect]
     Active Substance: LENALIDOMIDE
     Dosage: 21/28 DAYS
     Route: 048
     Dates: start: 20210313, end: 2022
  4. POMALYST [Suspect]
     Active Substance: POMALIDOMIDE
     Indication: Plasma cell myeloma
     Dosage: 21/28 DAYS
     Route: 048
     Dates: start: 20210313
  5. POMALYST [Suspect]
     Active Substance: POMALIDOMIDE
     Route: 065
  6. POMALYST [Suspect]
     Active Substance: POMALIDOMIDE
     Route: 048
  7. PROBIOTICS NOS [Concomitant]
     Active Substance: PROBIOTICS NOS
     Indication: Product used for unknown indication
     Route: 065
  8. SYSTANE (HYPROMELLOSE 2910 (4000 MPA.S)) [Concomitant]
     Active Substance: HYPROMELLOSE 2910 (4000 MPA.S)
     Indication: Product used for unknown indication
     Route: 065
  9. ZYRTEC [Concomitant]
     Active Substance: CETIRIZINE HYDROCHLORIDE
     Indication: Product used for unknown indication

REACTIONS (5)
  - Headache [Unknown]
  - Neutrophil count decreased [Unknown]
  - Dizziness [Recovering/Resolving]
  - Feeling abnormal [Unknown]
  - Eye disorder [Unknown]
